FAERS Safety Report 7499241-9 (Version None)
Quarter: 2011Q2

REPORT INFORMATION
  Report Type: 
  Country: None (occurrence: None)
  Receive Date: 20110524
  Receipt Date: 20110512
  Transmission Date: 20111010
  Serious: Yes (Hospitalization, Other)
  Sender: FDA-Public Use
  Company Number: US-BAYER-2011-031472

PATIENT
  Age: 53 Year
  Sex: Female

DRUGS (2)
  1. NEXAVAR [Suspect]
     Indication: HEPATIC NEOPLASM MALIGNANT
     Dosage: 200 MG, BID
     Route: 048
     Dates: start: 20110405
  2. LACTULOSE [Concomitant]
     Indication: CONSTIPATION
     Route: 048

REACTIONS (9)
  - NAUSEA [None]
  - ORAL PAIN [None]
  - BLOOD GLUCOSE INCREASED [None]
  - FLATULENCE [None]
  - LIVER TRANSPLANT [None]
  - CONSTIPATION [None]
  - DRY SKIN [None]
  - ABDOMINAL PAIN UPPER [None]
  - DIARRHOEA [None]
